FAERS Safety Report 18418316 (Version 1)
Quarter: 2020Q4

REPORT INFORMATION
  Report Type: Spontaneous
  Country: JP (occurrence: JP)
  Receive Date: 20201023
  Receipt Date: 20201023
  Transmission Date: 20210114
  Serious: Yes (Other)
  Sender: FDA-Public Use
  Company Number: JP-PFIZER INC-2020401954

PATIENT
  Age: 9 Decade
  Sex: Female

DRUGS (4)
  1. TRAMAL [Suspect]
     Active Substance: TRAMADOL
     Dosage: UNK, 2X/DAY (IN THE MORNING AND EVENING)
     Route: 048
     Dates: start: 202001
  2. TAKECAB [Concomitant]
     Active Substance: VONOPRAZAN FUMARATE
     Indication: GASTROOESOPHAGEAL REFLUX DISEASE
     Dosage: UNK, 1X/DAY (BEFORE BEDTIME)
     Route: 048
  3. CELECOX [Suspect]
     Active Substance: CELECOXIB
     Dosage: UNK
     Route: 048
     Dates: start: 202001
  4. TARLIGE [Suspect]
     Active Substance: MIROGABALIN BESYLATE
     Dosage: UNK
     Route: 048
     Dates: start: 202001

REACTIONS (10)
  - Dizziness [Unknown]
  - Arthralgia [Unknown]
  - Fall [Unknown]
  - Pain in extremity [Unknown]
  - Monoplegia [Unknown]
  - Somnolence [Unknown]
  - Hypoaesthesia [Unknown]
  - Therapeutic product effect delayed [Unknown]
  - Abdominal pain upper [Unknown]
  - Illness [Unknown]
